FAERS Safety Report 4591191-0 (Version None)
Quarter: 2005Q1

REPORT INFORMATION
  Report Type: 
  Country: None (occurrence: None)
  Receive Date: 20050225
  Receipt Date: 20050214
  Transmission Date: 20050727
  Serious: Yes (Hospitalization)
  Sender: FDA-Public Use
  Company Number: JP-MERCK-0502USA01872

PATIENT
  Age: 83 Year
  Sex: Female
  Weight: 51 kg

DRUGS (9)
  1. COZAAR [Suspect]
     Indication: CARDIAC FAILURE
     Route: 048
     Dates: start: 20040601, end: 20040619
  2. COZAAR [Suspect]
     Route: 048
     Dates: start: 20040620, end: 20040812
  3. COZAAR [Suspect]
     Route: 048
     Dates: start: 20040813, end: 20041214
  4. ITOROL [Concomitant]
     Indication: CARDIAC FAILURE
     Route: 048
     Dates: start: 19990501
  5. FRANDOL TAPE S [Concomitant]
     Indication: CARDIAC FAILURE
     Route: 061
     Dates: start: 19990901
  6. DIGOXIN [Concomitant]
     Indication: ATRIAL FIBRILLATION
     Route: 048
     Dates: start: 19990501
  7. PANALDINE [Concomitant]
     Indication: THROMBOSIS PROPHYLAXIS
     Route: 048
     Dates: start: 19990602
  8. LASIX [Concomitant]
     Indication: CARDIAC FAILURE
     Route: 048
     Dates: start: 19990501
  9. ALLOPURINOL [Concomitant]
     Indication: HYPERURICAEMIA
     Route: 048
     Dates: start: 20011108

REACTIONS (4)
  - ADVERSE EVENT [None]
  - CARDIAC FAILURE [None]
  - MEDICATION ERROR [None]
  - PLATELET COUNT DECREASED [None]
